FAERS Safety Report 24117187 (Version 5)
Quarter: 2024Q4

REPORT INFORMATION
  Report Type: Report from Study
  Country: US (occurrence: US)
  Receive Date: 20240722
  Receipt Date: 20241226
  Transmission Date: 20250115
  Serious: Yes (Other)
  Sender: NOVARTIS
  Company Number: US-002147023-NVSC2024US038405

PATIENT
  Age: 50 Year
  Sex: Female

DRUGS (2)
  1. KESIMPTA [Suspect]
     Active Substance: OFATUMUMAB
     Indication: Multiple sclerosis
     Dosage: 20 MG, QW (ONCE A WEEK FOR 3 WEEKS, SKIP 4TH WEEK, THEN ON 5TH WEEK BEGIN MONTHLY)
     Route: 058
     Dates: start: 20240216
  2. KESIMPTA [Suspect]
     Active Substance: OFATUMUMAB
     Dosage: 20 MG, QMO (LAST INJECTION)
     Route: 058

REACTIONS (19)
  - Colitis [Unknown]
  - Constipation [Recovering/Resolving]
  - Abdominal pain [Unknown]
  - Multiple sclerosis relapse [Recovering/Resolving]
  - Paraesthesia [Unknown]
  - Influenza like illness [Unknown]
  - Pain [Recovered/Resolved]
  - Pain [Recovering/Resolving]
  - Injection site pruritus [Unknown]
  - Fatigue [Recovered/Resolved]
  - Fatigue [Unknown]
  - Incorrect dose administered [Unknown]
  - Accidental exposure to product [Unknown]
  - Wrong technique in product usage process [Unknown]
  - COVID-19 [Recovered/Resolved]
  - Inappropriate schedule of product administration [Unknown]
  - Fall [Unknown]
  - Limb injury [Unknown]
  - Feeling abnormal [Recovering/Resolving]

NARRATIVE: CASE EVENT DATE: 20240216
